FAERS Safety Report 5056783-3 (Version None)
Quarter: 2006Q2

REPORT INFORMATION
  Report Type: 
  Country: None (occurrence: None)
  Receive Date: 20060619
  Receipt Date: 20060527
  Transmission Date: 20061013
  Serious: Yes (Life-Threatening, Hospitalization)
  Sender: FDA-Public Use
  Company Number: US-2005-009073

PATIENT
  Age: 69 Year
  Sex: Male

DRUGS (8)
  1. ZEVALIN [Suspect]
     Indication: NON-HODGKIN'S LYMPHOMA
     Dosage: SEE IMAGE
     Route: 042
     Dates: start: 20050317, end: 20050317
  2. ZEVALIN [Suspect]
     Indication: NON-HODGKIN'S LYMPHOMA
     Dosage: SEE IMAGE
     Route: 042
     Dates: start: 20050323, end: 20050323
  3. RITUXIMAB (RITUXIMAB) [Suspect]
     Indication: NON-HODGKIN'S LYMPHOMA
     Dosage: 490 MG, 1 DOSE, INTRAVENOUS
     Route: 042
     Dates: start: 20050317, end: 20050317
  4. RITUXIMAB (RITUXIMAB) [Suspect]
     Indication: NON-HODGKIN'S LYMPHOMA
     Dosage: 490 MG, 1 DOSE, INTRAVENOUS
     Route: 042
     Dates: start: 20050323, end: 20050325
  5. YTTRIUM (90Y) (YTTRIUM (90Y)) [Suspect]
     Indication: NON-HODGKIN'S LYMPHOMA
     Dosage: 31.9 MCI, 1 DOSE, INTRAVENOUS
     Route: 042
     Dates: start: 20050323, end: 20050323
  6. INDIUM (111 IN)(INDIUM 111 IN)) [Suspect]
     Indication: NON-HODGKIN'S LYMPHOMA
     Dosage: 5.1 MCI, 1 DOSE, INTRAVENOUS
     Route: 042
     Dates: start: 20050317, end: 20050317
  7. FLUDARABINE PHOSPHAT (SH T 586) [Suspect]
     Indication: NON-HODGKIN'S LYMPHOMA
     Dates: start: 20030113, end: 20030113
  8. FLUDARABINE PHOSPHAT (SH T 586) [Suspect]
     Indication: NON-HODGKIN'S LYMPHOMA
     Dates: start: 20041026, end: 20041026

REACTIONS (3)
  - GASTROINTESTINAL HAEMORRHAGE [None]
  - PANCYTOPENIA [None]
  - RESPIRATORY DISTRESS [None]
